FAERS Safety Report 7928241-7 (Version None)
Quarter: 2011Q4

REPORT INFORMATION
  Report Type: 
  Country: None (occurrence: None)
  Receive Date: 20111118
  Receipt Date: 20111115
  Transmission Date: 20120403
  Serious: Yes (Hospitalization)
  Sender: FDA-Public Use
  Company Number: GB-ROCHE-788049

PATIENT
  Sex: Male
  Weight: 53.8 kg

DRUGS (7)
  1. ASPIRIN [Concomitant]
     Dates: start: 20080801, end: 20110705
  2. SIMVASTATIN [Concomitant]
  3. XELODA [Suspect]
     Indication: COLORECTAL CANCER METASTATIC
     Dosage: DATE OF LAST DOSE PRIOR TOSAE 07 JUNE 2011.  THERAPY TEMPORARILY INTERRUPTED.
     Route: 048
  4. DIPYRIDAMOLE [Concomitant]
     Dates: start: 20080801, end: 20110705
  5. AVASTIN [Suspect]
     Indication: COLORECTAL CANCER METASTATIC
     Dosage: DATE OF LAST DOSE PRIOR TO SAE IS 14 JUNE 2011. THERAPY TEMPORARILY INTERRUPTED
     Route: 042
  6. LANSOPRAZOLE [Concomitant]
  7. AMLODIPINE [Concomitant]

REACTIONS (2)
  - AMNESIA [None]
  - CONFUSIONAL STATE [None]
